FAERS Safety Report 23919836 (Version 1)
Quarter: 2024Q2

REPORT INFORMATION
  Report Type: Spontaneous
  Country: US (occurrence: None)
  Receive Date: 20240529
  Receipt Date: 20240529
  Transmission Date: 20240715
  Serious: Yes (Death)
  Sender: FDA-Public Use
  Company Number: None

PATIENT
  Age: 59 Year
  Sex: Male

DRUGS (1)
  1. SEROSTIM [Suspect]
     Active Substance: SOMATROPIN
     Indication: Cachexia
     Dosage: FREQUENCY : DAILY;?OTHER ROUTE : INJECTABLE;?
     Route: 050
     Dates: start: 20201228, end: 20230101

REACTIONS (1)
  - Death [None]

NARRATIVE: CASE EVENT DATE: 20240102
